FAERS Safety Report 23424524 (Version 1)
Quarter: 2024Q1

REPORT INFORMATION
  Report Type: Spontaneous
  Country: CA (occurrence: CA)
  Receive Date: 20240120
  Receipt Date: 20240120
  Transmission Date: 20240410
  Serious: Yes (Hospitalization, Other)
  Sender: FDA-Public Use
  Company Number: None

PATIENT
  Age: 52 Year
  Sex: Female

DRUGS (20)
  1. ONDANSETRON HYDROCHLORIDE [Suspect]
     Active Substance: ONDANSETRON HYDROCHLORIDE
     Indication: Nausea
     Dosage: 2 EVERY 1 DAYS
     Route: 048
  2. ASPIRIN [Suspect]
     Active Substance: ASPIRIN
     Indication: Product used for unknown indication
     Route: 065
  3. CODEINE [Suspect]
     Active Substance: CODEINE
     Indication: Product used for unknown indication
     Route: 065
  4. OMALIZUMAB [Suspect]
     Active Substance: OMALIZUMAB
     Indication: Asthma
     Route: 058
  5. ACYCLOVIR [Concomitant]
     Active Substance: ACYCLOVIR
     Indication: Eye infection
     Dosage: 2 EVERY 1 DAYS
     Route: 065
  6. EPINEPHRINE [Concomitant]
     Active Substance: EPINEPHRINE
     Indication: Product used for unknown indication
     Dosage: SOLUTION INTRAMUSCULAR?PREFILLED?AUTO-INJECTOR - SINGLE?USE
     Route: 065
  7. ALVESCO [Concomitant]
     Active Substance: CICLESONIDE
     Indication: Product used for unknown indication
     Dosage: AEROSOL, METERED DOSE?2 EVERY 1 DAYS
     Route: 065
  8. CLONAZEPAM [Concomitant]
     Active Substance: CLONAZEPAM
     Indication: Insomnia
     Dosage: 1 EVERY 1 DAYS
     Route: 065
  9. DICLECTIN [Concomitant]
     Active Substance: DOXYLAMINE SUCCINATE\PYRIDOXINE HYDROCHLORIDE
     Indication: Hyperchlorhydria
     Dosage: 1 EVERY 1 DAYS?TABLET (DELAYED- RELEASE)
     Route: 065
  10. GABAPENTIN [Concomitant]
     Active Substance: GABAPENTIN
     Indication: Product used for unknown indication
     Route: 065
  11. PANCREATIN [Concomitant]
     Active Substance: PANCRELIPASE
     Indication: Gastrointestinal motility disorder
  12. SPIRIVA [Concomitant]
     Active Substance: TIOTROPIUM BROMIDE MONOHYDRATE
     Indication: Product used for unknown indication
     Dosage: 2 EVERY 1 DAYS
     Route: 065
  13. TORADOL [Concomitant]
     Active Substance: KETOROLAC TROMETHAMINE
     Indication: Arthralgia
     Route: 065
  14. VENLAFAXINE HYDROCHLORIDE [Concomitant]
     Active Substance: VENLAFAXINE HYDROCHLORIDE
     Indication: Depression
  15. VENTOLIN [Concomitant]
     Active Substance: ALBUTEROL SULFATE
     Indication: Product used for unknown indication
     Route: 065
  16. FORMOTEROL\MOMETASONE [Concomitant]
     Active Substance: FORMOTEROL\MOMETASONE
     Indication: Product used for unknown indication
     Dosage: 2 EVERY 1 DAYS?AEROSOL, METERED DOSE
     Route: 065
  17. OMALIZUMAB [Suspect]
     Active Substance: OMALIZUMAB
     Indication: Asthma
     Dosage: 1 EVERY 1 WEEKS
     Route: 058
  18. PANCREATIN [Concomitant]
     Active Substance: PANCRELIPASE
     Indication: Gastrointestinal motility disorder
     Dosage: 4 EVERY 1 DAYS
  19. VENLAFAXINE HYDROCHLORIDE [Concomitant]
     Active Substance: VENLAFAXINE HYDROCHLORIDE
     Indication: Depression
     Dosage: 1 EVERY 1 DAYS
  20. OMALIZUMAB [Suspect]
     Active Substance: OMALIZUMAB
     Indication: Asthma
     Dosage: 2 EVERY 1 WEEKS
     Route: 058

REACTIONS (21)
  - Ankle fracture [Not Recovered/Not Resolved]
  - Arthralgia [Not Recovered/Not Resolved]
  - Blood calcium increased [Not Recovered/Not Resolved]
  - Cerebrovascular accident [Not Recovered/Not Resolved]
  - Chest pain [Not Recovered/Not Resolved]
  - Chills [Not Recovered/Not Resolved]
  - Dizziness postural [Not Recovered/Not Resolved]
  - Drug hypersensitivity [Not Recovered/Not Resolved]
  - Dyspnoea [Not Recovered/Not Resolved]
  - Fall [Not Recovered/Not Resolved]
  - Haemoglobin decreased [Not Recovered/Not Resolved]
  - Heart rate increased [Not Recovered/Not Resolved]
  - Ligament rupture [Not Recovered/Not Resolved]
  - Limb injury [Not Recovered/Not Resolved]
  - Osteomyelitis [Not Recovered/Not Resolved]
  - Pneumonia [Not Recovered/Not Resolved]
  - Pyelonephritis [Not Recovered/Not Resolved]
  - Pyrexia [Not Recovered/Not Resolved]
  - Renal failure [Not Recovered/Not Resolved]
  - Weight decreased [Not Recovered/Not Resolved]
  - Weight increased [Not Recovered/Not Resolved]
